FAERS Safety Report 9112835 (Version 1)
Quarter: 2013Q1

REPORT INFORMATION
  Report Type: Spontaneous
  Country: AU (occurrence: AU)
  Receive Date: 20130211
  Receipt Date: 20130211
  Transmission Date: 20140127
  Serious: Yes (Life-Threatening)
  Sender: FDA-Public Use
  Company Number: AU-ROCHE-1188488

PATIENT
  Age: 27 Year
  Sex: Female

DRUGS (1)
  1. METALYSE [Suspect]
     Indication: MYOCARDIAL INFARCTION
     Route: 065
     Dates: start: 20121226, end: 20121226

REACTIONS (3)
  - Electrocardiogram ST segment elevation [Unknown]
  - Drug ineffective [Unknown]
  - Product quality issue [Unknown]
